FAERS Safety Report 8894966 (Version 2)
Quarter: 2012Q4

REPORT INFORMATION
  Report Type: 
  Country: US (occurrence: US)
  Receive Date: 20121108
  Receipt Date: 20121127
  Transmission Date: 20130627
  Serious: Yes (Hospitalization)
  Sender: FDA-Public Use
  Company Number: PHEH2012US021783

PATIENT
  Sex: Male

DRUGS (1)
  1. TOBI [Suspect]
     Indication: BRONCHIECTASIS
     Dosage: 300 mg, BID (5 ml)
     Dates: start: 201204

REACTIONS (11)
  - Pneumonia [Unknown]
  - Clostridium difficile infection [Unknown]
  - Pain [Unknown]
  - Diarrhoea [Unknown]
  - Intestinal obstruction [Unknown]
  - Gastrointestinal hypomotility [Unknown]
  - Vomiting [Unknown]
  - Gallbladder disorder [Unknown]
  - Abdominal distension [Unknown]
  - Weight decreased [Unknown]
  - Dizziness [Unknown]
